FAERS Safety Report 19122828 (Version 1)
Quarter: 2021Q2

REPORT INFORMATION
  Report Type: Spontaneous
  Country: JP (occurrence: JP)
  Receive Date: 20210412
  Receipt Date: 20210412
  Transmission Date: 20210717
  Serious: Yes (Death, Other)
  Sender: FDA-Public Use
  Company Number: JP-SUN PHARMACEUTICAL INDUSTRIES LTD-2021R1-289128

PATIENT
  Age: 65 Year
  Sex: Male

DRUGS (12)
  1. TS?1 [Concomitant]
     Active Substance: GIMERACIL\OTERACIL\TEGAFUR
     Indication: PANCREATIC CARCINOMA
     Dosage: UNK
     Route: 048
  2. OXALIPLATIN. [Suspect]
     Active Substance: OXALIPLATIN
     Indication: PANCREATIC CARCINOMA
     Dosage: UNK (17 COURSES)
     Route: 065
  3. ABRAXANE [Suspect]
     Active Substance: PACLITAXEL
     Indication: METASTASES TO LIVER
  4. LEVOFOLINATE [Suspect]
     Active Substance: LEVOLEUCOVORIN CALCIUM
     Indication: PANCREATIC CARCINOMA
     Dosage: UNK (17 COURSES)
     Route: 065
  5. LEVOFOLINATE [Suspect]
     Active Substance: LEVOLEUCOVORIN CALCIUM
     Dosage: UNK
  6. IRINOTECAN 40MG [Suspect]
     Active Substance: IRINOTECAN
     Indication: PANCREATIC CARCINOMA
     Dosage: UNK (17 COUSE)
     Route: 065
  7. GEMCITABINE (SOLUTION FOR INFUSION), 200MG [TAIHO] [Suspect]
     Active Substance: GEMCITABINE
     Dosage: UNK
     Route: 041
  8. GEMCITABINE (SOLUTION FOR INFUSION), 200MG [TAIHO] [Suspect]
     Active Substance: GEMCITABINE
     Indication: PANCREATIC CARCINOMA
     Dosage: UNK (2 COUSE)
     Route: 041
  9. 5?FU [Suspect]
     Active Substance: FLUOROURACIL
     Indication: PANCREATIC CARCINOMA
     Dosage: UNK (17 COURSES)
     Route: 065
  10. GEMCITABINE (SOLUTION FOR INFUSION), 200MG [TAIHO] [Suspect]
     Active Substance: GEMCITABINE
     Dosage: UNK (14 COURSES: 800MG/STANDARD LIVER VOLUM; ADMINISTERED OVER 30 MIN ON THE 1ST DAY; BIWEEKLY)
     Route: 041
     Dates: start: 201810
  11. 5?FU [Suspect]
     Active Substance: FLUOROURACIL
     Dosage: UNK (14 COURSES; 250MG CONTINUOUSLY OVER 24 HOURS FOR DAYS 1?6; BIWEEKLY)
     Route: 041
     Dates: start: 201810
  12. ABRAXANE [Suspect]
     Active Substance: PACLITAXEL
     Indication: PANCREATIC CARCINOMA
     Dosage: UNK (2 COUSES)
     Route: 041

REACTIONS (7)
  - Condition aggravated [Fatal]
  - Renal impairment [Unknown]
  - Neuralgia [Unknown]
  - Jejunal stenosis [Recovering/Resolving]
  - Neutropenia [Recovered/Resolved]
  - Dysgeusia [Unknown]
  - Metastases to peritoneum [Unknown]
